FAERS Safety Report 16979889 (Version 1)
Quarter: 2019Q4

REPORT INFORMATION
  Report Type: Spontaneous
  Country: US (occurrence: US)
  Receive Date: 20191031
  Receipt Date: 20191031
  Transmission Date: 20200122
  Serious: No
  Sender: FDA-Public Use
  Company Number: US-GLENMARK PHARMACEUTICALS-2019GMK043775

PATIENT

DRUGS (3)
  1. FLUOCINOLONE ACETONIDE 0.01% TOPICAL OIL (SCALP OIL) [Suspect]
     Active Substance: FLUOCINOLONE ACETONIDE
     Dosage: UNK
     Route: 061
     Dates: start: 201910
  2. LAMOTRIGINE. [Concomitant]
     Active Substance: LAMOTRIGINE
     Indication: BRAIN NEOPLASM
     Dosage: 200 MG, BID
     Route: 065
  3. FLUOCINOLONE ACETONIDE 0.01% TOPICAL OIL (SCALP OIL) [Suspect]
     Active Substance: FLUOCINOLONE ACETONIDE
     Indication: PRURITUS
     Dosage: UNK; LEAVE OVERNIGHT
     Route: 061
     Dates: start: 20190315, end: 201907

REACTIONS (2)
  - Drug ineffective for unapproved indication [Unknown]
  - Intercepted product dispensing error [Unknown]

NARRATIVE: CASE EVENT DATE: 20190315
